FAERS Safety Report 4831906-7 (Version None)
Quarter: 2005Q4

REPORT INFORMATION
  Report Type: 
  Country: None (occurrence: None)
  Receive Date: 20051118
  Receipt Date: 20050920
  Transmission Date: 20060501
  Serious: Yes (Other)
  Sender: FDA-Public Use
  Company Number: US-ROCHE-418599

PATIENT
  Age: 77 Year
  Sex: Female
  Weight: 55.3 kg

DRUGS (2)
  1. BONIVA [Suspect]
     Indication: DRUG USE FOR UNKNOWN INDICATION
     Route: 048
     Dates: start: 20050906
  2. UNSPECIFIED MEDICATION [Concomitant]
     Route: 048

REACTIONS (2)
  - INFREQUENT BOWEL MOVEMENTS [None]
  - VISUAL DISTURBANCE [None]
